FAERS Safety Report 9610147 (Version 1)
Quarter: 2013Q4

REPORT INFORMATION
  Report Type: Report from Study
  Country: TW (occurrence: TW)
  Receive Date: 20131009
  Receipt Date: 20131009
  Transmission Date: 20140711
  Serious: No
  Sender: FDA-Public Use
  Company Number: PHHY2013TW071395

PATIENT
  Age: 51 Year
  Sex: Male

DRUGS (60)
  1. AMN107 [Suspect]
     Dosage: 800 MG, UNK
     Dates: start: 20110425
  2. AMLODIPINE BESYLATE [Concomitant]
     Indication: HYPERTENSION
     Dosage: UNK
     Dates: start: 20110215, end: 20110524
  3. AMLODIPINE BESYLATE [Concomitant]
     Dosage: UNK
     Dates: start: 20110802, end: 20121224
  4. ACETAMINOPHEN [Concomitant]
     Indication: GASTRITIS
     Dosage: UNK
     Dates: start: 20130218, end: 20130218
  5. ACETAMINOPHEN [Concomitant]
     Indication: UPPER RESPIRATORY TRACT INFECTION
     Dates: start: 20130319, end: 20130326
  6. ACETAMINOPHEN [Concomitant]
     Dosage: UNK
     Dates: start: 20130412, end: 20130419
  7. AMBROXOL HCL [Concomitant]
     Indication: NASOPHARYNGITIS
     Dates: start: 20111122, end: 20111202
  8. AMBROXOL HCL [Concomitant]
     Indication: UPPER RESPIRATORY TRACT INFECTION
     Dates: start: 20120120, end: 20120130
  9. AMBROXOL HCL [Concomitant]
     Dosage: UNK
     Dates: start: 20121016, end: 20121025
  10. AMBROXOL HCL [Concomitant]
     Dosage: UNK
     Dates: start: 20130319, end: 20130408
  11. AMBROXOL HCL [Concomitant]
     Dosage: UNK
     Dates: start: 20130412
  12. ANTAZOLINE HYDROCHLORIDE [Concomitant]
     Indication: CONJUNCTIVITIS
     Dates: start: 20120120, end: 20120409
  13. BETAMETHASONE VALERATE [Concomitant]
     Indication: PRURITUS
     Dates: start: 20120921, end: 20121015
  14. BETAMETHASONE VALERATE [Concomitant]
     Indication: TINEA PEDIS
     Dates: start: 20121225, end: 20130117
  15. CLOBETASONE BUTYRATE [Concomitant]
     Indication: PRURITUS
     Dosage: UNK
     Dates: start: 20110503, end: 20110523
  16. CLOBETASONE BUTYRATE [Concomitant]
     Dates: start: 20110802, end: 20110830
  17. CLOBETASONE BUTYRATE [Concomitant]
     Dosage: UNK
     Dates: start: 20120921, end: 20121112
  18. CLOBETASONE BUTYRATE [Concomitant]
     Dosage: UNK
     Dates: start: 20121225, end: 20130117
  19. CHOLESTYRAMINE RESIN [Concomitant]
     Indication: DIARRHOEA
     Dates: start: 20110705, end: 20110707
  20. CHOLESTYRAMINE RESIN [Concomitant]
     Dates: start: 20110802, end: 20110809
  21. CHOLESTYRAMINE RESIN [Concomitant]
     Dosage: UNK
     Dates: start: 20110830, end: 20110927
  22. CIPROFLOXACIN HYDROCHLORIDE MONOHYDRATE [Concomitant]
     Indication: GASTROENTERITIS
     Dates: start: 20130215, end: 20130218
  23. CIPROFLOXACIN LACTATE [Concomitant]
     Indication: GASTROENTERITIS
     Dates: start: 20130215, end: 20130215
  24. CLONAZEPAM [Concomitant]
     Indication: MUSCLE SPASMS
     Dates: start: 20110215, end: 20110524
  25. CLONAZEPAM [Concomitant]
     Indication: INSOMNIA
     Dosage: UNK
     Dates: start: 20110802, end: 20120119
  26. CLONAZEPAM [Concomitant]
     Dosage: UNK
     Dates: start: 20120214, end: 20120820
  27. CLONAZEPAM [Concomitant]
     Dates: start: 20121016, end: 20121203
  28. DEXTROMETHORPHAN [Concomitant]
     Indication: NASOPHARYNGITIS
     Dates: start: 20111122, end: 20111202
  29. DEXTROMETHORPHAN [Concomitant]
     Dates: start: 20120120, end: 20120130
  30. DEXTROMETHORPHAN HBR [Concomitant]
     Indication: NASOPHARYNGITIS
     Dates: start: 20121016, end: 20121025
  31. DEXTROMETHORPHAN HBR [Concomitant]
     Indication: UPPER RESPIRATORY TRACT INFECTION
     Dates: start: 20130319, end: 20130408
  32. DEXTROMETHORPHAN HBR [Concomitant]
     Dates: start: 20130412
  33. DIMETHICONE [Concomitant]
     Indication: FLATULENCE
     Dosage: UNK
     Dates: start: 20110705, end: 20110801
  34. DIMETHICONE [Concomitant]
     Indication: ABDOMINAL DISTENSION
     Dates: start: 20111122, end: 20120119
  35. DIMETHICONE [Concomitant]
     Dates: start: 20120410, end: 20120720
  36. DIMETHICONE [Concomitant]
     Dates: start: 20120821, end: 20121112
  37. DIMETHICONE [Concomitant]
     Dates: start: 20120118
  38. FAMOTIDINE [Concomitant]
     Indication: GASTROOESOPHAGEAL REFLUX DISEASE
     Dates: start: 20130118
  39. FEXOFENADINE HCL [Concomitant]
     Indication: NASOPHARYNGITIS
     Dates: start: 20111122, end: 20111202
  40. FEXOFENADINE HCL [Concomitant]
     Indication: UPPER RESPIRATORY TRACT INFECTION
     Dates: start: 20120120, end: 20120130
  41. FEXOFENADINE HCL [Concomitant]
     Dates: start: 20121016, end: 20121025
  42. FEXOFENADINE HCL [Concomitant]
     Dosage: UNK
     Dates: start: 20130319, end: 20130408
  43. FEXOFENADINE HCL [Concomitant]
     Dosage: UNK
     Dates: start: 20130412
  44. FLUNITRAZEPAM [Concomitant]
     Indication: INSOMNIA
     Dates: start: 20120120, end: 20120213
  45. FLUNITRAZEPAM [Concomitant]
     Dosage: UNK
     Dates: start: 20130118
  46. FUSIDIC ACID [Concomitant]
     Indication: PRURITUS
     Dates: start: 20110524, end: 20110621
  47. HYDROCORTISONE ACETATE [Concomitant]
     Indication: PRURITUS
     Dates: start: 20120508, end: 20120821
  48. INFLUENZA VACCINE INACTIVATED [Concomitant]
     Indication: INFLUENZA
     Dates: start: 20121113, end: 20121113
  49. INDAPAMIDE [Concomitant]
     Indication: HYPERTENSION
     Dates: start: 20110215, end: 20110524
  50. LACTULOSE [Concomitant]
     Indication: CONSTIPATION
     Dates: start: 20120410, end: 20120414
  51. LEVOCETIRIZINE [Concomitant]
     Indication: PRURITUS
     Dates: start: 20110721, end: 20110801
  52. LOPERAMIDE HCL [Concomitant]
     Indication: DIARRHOEA
     Dates: start: 20121113, end: 20121123
  53. MAGNESIUM OXIDE [Concomitant]
     Indication: CONSTIPATION
     Dates: start: 20120410, end: 20120723
  54. PRAVASTATIN SODIUM [Concomitant]
     Indication: HYPERCHOLESTEROLAEMIA
     Dosage: UNK
     Dates: start: 20120724, end: 20120918
  55. PRAVASTATIN SODIUM [Concomitant]
     Dates: start: 20121016, end: 20121203
  56. PRAVASTATIN SODIUM [Concomitant]
     Dates: start: 20121225
  57. PROCHLORPERAZINE MALEATE [Concomitant]
     Indication: GASTROENTERITIS
     Dates: start: 20130215, end: 20130218
  58. PROCHLORPERAZINE MESILATE [Concomitant]
     Indication: GASTROENTERITIS
     Dates: start: 20130215, end: 20130215
  59. SERTACONAZOLE NITRATE [Concomitant]
     Indication: PRURITUS
     Dates: start: 20121225, end: 20130117
  60. SULFAMETHOXAZOLE [Concomitant]
     Indication: CONJUNCTIVITIS
     Dates: start: 20120120, end: 20120213

REACTIONS (1)
  - Tinea pedis [Unknown]
